FAERS Safety Report 25927462 (Version 2)
Quarter: 2025Q4

REPORT INFORMATION
  Report Type: Spontaneous
  Country: GB (occurrence: GB)
  Receive Date: 20251015
  Receipt Date: 20251117
  Transmission Date: 20260118
  Serious: Yes (Disabling, Other)
  Sender: ABBVIE
  Company Number: None

PATIENT
  Age: 69 Year
  Sex: Female
  Weight: 52 kg

DRUGS (2)
  1. ATOGEPANT [Suspect]
     Active Substance: ATOGEPANT
     Indication: Migraine prophylaxis
     Dosage: 60 MG AT NIGHT.
     Route: 048
     Dates: start: 20241216, end: 20250922
  2. AMITRIPTYLINE [Concomitant]
     Active Substance: AMITRIPTYLINE
     Indication: Irritable bowel syndrome

REACTIONS (7)
  - Depression [Recovered/Resolved]
  - Anxiety [Recovered/Resolved]
  - Fatigue [Unknown]
  - Somnolence [Unknown]
  - Hypertension [Recovering/Resolving]
  - Suicidal ideation [Recovered/Resolved]
  - Pollakiuria [Recovered/Resolved]
